FAERS Safety Report 20427760 (Version 2)
Quarter: 2022Q1

REPORT INFORMATION
  Report Type: Report from Study
  Country: AR (occurrence: None)
  Receive Date: 20220204
  Receipt Date: 20220222
  Transmission Date: 20220424
  Serious: Yes (Death, Hospitalization)
  Sender: FDA-Public Use
  Company Number: AR-Eisai Medical Research-EC-2022-106487

PATIENT
  Age: 19 Year
  Sex: Female
  Weight: 48.5 kg

DRUGS (8)
  1. LENVATINIB [Suspect]
     Active Substance: LENVATINIB
     Indication: Malignant melanoma
     Dosage: STARTING DOSE AT 14MG/M2, FLUCTUATED DOSAGE
     Route: 048
     Dates: start: 20210203, end: 20220103
  2. LEVOTHYROXINE SODIUM [Concomitant]
     Active Substance: LEVOTHYROXINE SODIUM
     Dates: start: 2020
  3. OMEPRAZOLE [Concomitant]
     Active Substance: OMEPRAZOLE
     Dates: start: 20210423
  4. AMOXICILLIN [Concomitant]
     Active Substance: AMOXICILLIN
     Dates: start: 20210620
  5. YASMIN [Concomitant]
     Active Substance: DROSPIRENONE\ETHINYL ESTRADIOL
     Dates: start: 20210721
  6. NAPROXEN [Concomitant]
     Active Substance: NAPROXEN
     Dates: start: 20210819
  7. VALSARTAN [Concomitant]
     Active Substance: VALSARTAN
     Dates: start: 20210916, end: 20220104
  8. ROSUVASTATIN [Concomitant]
     Active Substance: ROSUVASTATIN
     Dates: start: 20210921, end: 20220104

REACTIONS (1)
  - Intracranial pressure increased [Fatal]

NARRATIVE: CASE EVENT DATE: 20220105
